FAERS Safety Report 4562167-4 (Version None)
Quarter: 2005Q1

REPORT INFORMATION
  Report Type: 
  Country: None (occurrence: None)
  Receive Date: 20050125
  Receipt Date: 20050110
  Transmission Date: 20050727
  Serious: Yes (Other)
  Sender: FDA-Public Use
  Company Number: GXKR2005IT00469

PATIENT
  Age: 65 Year
  Sex: Female

DRUGS (4)
  1. ENALAPRIL (NGX)(ENALAPRIL MALEATE) UNKNOWN [Suspect]
     Indication: HYPERTENSION
  2. LOSARTAN (NGX) (LOSARTAN) [Suspect]
     Indication: HYPERTENSION
  3. PHENOBARBITAL TAB [Concomitant]
  4. CARBAMAZEPINE [Concomitant]

REACTIONS (5)
  - ABDOMINAL PAIN [None]
  - ANGIONEUROTIC OEDEMA [None]
  - BLOOD PRESSURE INADEQUATELY CONTROLLED [None]
  - EATING DISORDER [None]
  - GASTROINTESTINAL DISORDER [None]
